FAERS Safety Report 15982312 (Version 3)
Quarter: 2020Q1

REPORT INFORMATION
  Report Type: Spontaneous
  Country: NO (occurrence: NO)
  Receive Date: 20190219
  Receipt Date: 20200331
  Transmission Date: 20200409
  Serious: Yes (Hospitalization, Disabling, Other)
  Sender: FDA-Public Use
  Company Number: NO-PFIZER INC-2019068100

PATIENT
  Age: 43 Year
  Sex: Male

DRUGS (23)
  1. ZYLORIC [Concomitant]
     Active Substance: ALLOPURINOL
     Dosage: UNK
  2. EMCONCOR [Concomitant]
     Active Substance: BISOPROLOL FUMARATE
     Dosage: UNK
     Dates: start: 2012
  3. NITROGLYCERIN TAKEDA [Concomitant]
     Dosage: UNK
  4. CIALIS [Concomitant]
     Active Substance: TADALAFIL
     Dosage: UNK
  5. TRAMADOL ACTAVIS [Concomitant]
     Active Substance: TRAMADOL
     Dosage: UNK
  6. EZETROL [Concomitant]
     Active Substance: EZETIMIBE
     Dosage: UNK
  7. LIPITOR [Suspect]
     Active Substance: ATORVASTATIN CALCIUM
     Indication: TYPE 1 DIABETES MELLITUS
  8. ALBYL-E [Concomitant]
     Active Substance: ASPIRIN\MAGNESIUM OXIDE
     Dosage: UNK
  9. NOVORAPID [Concomitant]
     Active Substance: INSULIN ASPART
     Dosage: UNK
     Dates: start: 19900101
  10. LIPITOR [Suspect]
     Active Substance: ATORVASTATIN CALCIUM
     Indication: BLOOD CHOLESTEROL INCREASED
     Dosage: 80 MG, DAILY
     Dates: start: 2015, end: 20180715
  11. OMACOR [Concomitant]
     Active Substance: OMEGA-3-ACID ETHYL ESTERS
     Dosage: UNK
  12. CARDURAN CR [Concomitant]
     Active Substance: DOXAZOSIN MESYLATE
     Dosage: UNK
  13. STESOLID [Concomitant]
     Active Substance: DIAZEPAM
     Dosage: UNK
  14. PLAVIX [Concomitant]
     Active Substance: CLOPIDOGREL BISULFATE
     Dosage: UNK
  15. SOMAC [Concomitant]
     Active Substance: PANTOPRAZOLE SODIUM
     Dosage: UNK
  16. BURINEX [Concomitant]
     Active Substance: BUMETANIDE
     Dosage: UNK
  17. AFIPRAN [Concomitant]
     Active Substance: METOCLOPRAMIDE HYDROCHLORIDE
     Dosage: UNK
  18. PARALGIN FORTE [CODEINE PHOSPHATE;PARACETAMOL] [Concomitant]
     Dosage: UNK
  19. LIPITOR [Suspect]
     Active Substance: ATORVASTATIN CALCIUM
     Indication: CORONARY ARTERY DISEASE
  20. ADALAT [Concomitant]
     Active Substance: NIFEDIPINE
     Dosage: UNK
  21. COAPROVEL [Concomitant]
     Active Substance: HYDROCHLOROTHIAZIDE\IRBESARTAN
     Dosage: UNK
  22. IMOVANE [Concomitant]
     Active Substance: ZOPICLONE
     Dosage: UNK
  23. TOLVON [Concomitant]
     Active Substance: MIANSERIN
     Dosage: UNK

REACTIONS (12)
  - Gait disturbance [Not Recovered/Not Resolved]
  - Compartment syndrome [Recovered/Resolved with Sequelae]
  - Nerve injury [Not Recovered/Not Resolved]
  - Peroneal nerve palsy [Recovered/Resolved with Sequelae]
  - Rhabdomyolysis [Not Recovered/Not Resolved]
  - Dysarthria [Unknown]
  - Listless [Unknown]
  - Pain [Recovered/Resolved with Sequelae]
  - Muscle necrosis [Not Recovered/Not Resolved]
  - Fatigue [Unknown]
  - Pain in extremity [Recovered/Resolved with Sequelae]
  - Muscle injury [Not Recovered/Not Resolved]

NARRATIVE: CASE EVENT DATE: 201807
